FAERS Safety Report 4872592-X (Version None)
Quarter: 2006Q1

REPORT INFORMATION
  Report Type: 
  Country: None (occurrence: None)
  Receive Date: 20060103
  Receipt Date: 20051221
  Transmission Date: 20060701
  Serious: Yes (Other)
  Sender: FDA-Public Use
  Company Number: JP200511002972

PATIENT
  Age: 64 Year
  Sex: Male
  Weight: 66.4 kg

DRUGS (10)
  1. GEMZAR [Suspect]
     Indication: PANCREATIC CARCINOMA
     Dosage: 1800 MG, OTHER, INTRAVENOUS
     Route: 042
     Dates: start: 20051121
  2. SOLU-MEDROL [Concomitant]
  3. KYTRIL [Concomitant]
  4. LANSOPRAZOLE [Concomitant]
  5. MAGNESIUM OXIDE (MAGNESIUM OXIDE) [Concomitant]
  6. NIAXAN (NAPROXEN SODIUM) [Concomitant]
  7. NOVOLET 30 R CHU (INSULIN HUMAN INJECTION, ISOPHANE) [Concomitant]
  8. ANPEC (VERAPAMIL HYDROCHLORIDE) [Concomitant]
  9. FENTANYL ^JANSSEN^ (FENTANYL CITRATE) [Concomitant]
  10. PURSENNID /SCH/(SENNOSIDE A+B, SENNOSIDE A+B CALCIUM) [Concomitant]

REACTIONS (1)
  - HYPERGLYCAEMIA [None]
